FAERS Safety Report 6914083-8 (Version None)
Quarter: 2010Q3

REPORT INFORMATION
  Report Type: 
  Country: None (occurrence: None)
  Receive Date: 20100809
  Receipt Date: 20100805
  Transmission Date: 20110219
  Serious: Yes (Life-Threatening, Hospitalization)
  Sender: FDA-Public Use
  Company Number: PHHY2010JP46112

PATIENT
  Age: 12 Year
  Sex: Male
  Weight: 42 kg

DRUGS (3)
  1. TEGRETOL [Suspect]
     Indication: EPILEPSY
     Dosage: 500 MG DAILY (ONE 200 MG TAB IN MORNING AND THREE 100 MG TAB IN EVENING)
     Route: 048
     Dates: start: 20100226
  2. TEGRETOL [Suspect]
     Dosage: 1900 MG, UNK
     Route: 048
     Dates: start: 20100708, end: 20100708
  3. TEGRETOL [Suspect]
     Dosage: 400 MG DAILY
     Route: 048
     Dates: start: 20100712

REACTIONS (17)
  - ACCIDENTAL OVERDOSE [None]
  - ALTERED STATE OF CONSCIOUSNESS [None]
  - ANTICONVULSANT DRUG LEVEL INCREASED [None]
  - ATAXIA [None]
  - BLOOD ALKALINE PHOSPHATASE INCREASED [None]
  - COMA [None]
  - DIZZINESS [None]
  - DRUG DOSE OMISSION [None]
  - DRUG TOXICITY [None]
  - DYSKINESIA [None]
  - DYSSTASIA [None]
  - HYPERSOMNIA [None]
  - INTERMITTENT CLAUDICATION [None]
  - SEDATION [None]
  - SNORING [None]
  - TREATMENT NONCOMPLIANCE [None]
  - WHEELCHAIR USER [None]
